FAERS Safety Report 26088661 (Version 1)
Quarter: 2025Q4

REPORT INFORMATION
  Report Type: Spontaneous
  Country: US (occurrence: None)
  Receive Date: 20251125
  Receipt Date: 20251125
  Transmission Date: 20260117
  Serious: Yes (Hospitalization)
  Sender: FDA-CTU
  Company Number: None

PATIENT
  Sex: Male

DRUGS (11)
  1. MYCOPHENOLATE MOFETIL [Suspect]
     Active Substance: MYCOPHENOLATE MOFETIL
     Indication: Renal transplant
     Route: 048
     Dates: start: 20201212
  2. ASPIRIN LOW TAB 81MG EC [Concomitant]
  3. CARVEDILOL [Concomitant]
     Active Substance: CARVEDILOL
  4. CENTRUM CHW SILVER [Concomitant]
  5. CLONIDINE TAB 0.1MG [Concomitant]
  6. HYDRALAZINE TAB 50MG [Concomitant]
  7. LEVOTHYROXIN TAB 300MCG [Concomitant]
  8. MAGNESIUM TAB 500MG [Concomitant]
  9. OS-CAL+D3 TAB 500-200 [Concomitant]
  10. PHOSLO CAP 667MG [Concomitant]
  11. PRAVACHOL TAB 40MG [Concomitant]

REACTIONS (1)
  - Hospitalisation [None]
